FAERS Safety Report 4854258-5 (Version None)
Quarter: 2005Q4

REPORT INFORMATION
  Report Type: 
  Country: None (occurrence: None)
  Receive Date: 20051215
  Receipt Date: 20051205
  Transmission Date: 20060501
  Serious: Yes (Other)
  Sender: FDA-Public Use
  Company Number: US-JNJFOC-20031001635

PATIENT
  Sex: Female
  Weight: 59.88 kg

DRUGS (3)
  1. INFLIXIMAB [Suspect]
     Indication: CROHN'S DISEASE
     Route: 042
  2. MESALAMINE [Concomitant]
  3. ANTIBIOTICS [Concomitant]

REACTIONS (1)
  - INFLAMMATORY CARCINOMA OF THE BREAST [None]
